FAERS Safety Report 7527698-3 (Version None)
Quarter: 2011Q2

REPORT INFORMATION
  Report Type: 
  Country: None (occurrence: None)
  Receive Date: 20110607
  Receipt Date: 20110524
  Transmission Date: 20111010
  Serious: Yes (Hospitalization, Other)
  Sender: FDA-Public Use
  Company Number: PHHY2011DE43574

PATIENT

DRUGS (1)
  1. CLOZAPINE [Suspect]
     Dosage: 75 MG, QD
     Route: 048

REACTIONS (4)
  - INFECTION [None]
  - PYREXIA [None]
  - AORTIC VALVE STENOSIS [None]
  - AORTIC VALVE INCOMPETENCE [None]
